FAERS Safety Report 5067411-5 (Version None)
Quarter: 2006Q3

REPORT INFORMATION
  Report Type: 
  Country: None (occurrence: None)
  Receive Date: 20060726
  Receipt Date: 20060609
  Transmission Date: 20061208
  Serious: Yes (Life-Threatening, Other)
  Sender: FDA-Public Use
  Company Number: SHI_0025_2006

PATIENT
  Age: 40 Year
  Sex: Female
  Weight: 66 kg

DRUGS (2)
  1. CEDAX [Suspect]
     Indication: RESPIRATORY TRACT INFECTION
     Dosage: 400 MG QD PO
     Route: 048
     Dates: start: 20060511, end: 20060515
  2. CEDAX [Suspect]
     Indication: SINUSITIS
     Dosage: 400 MG QD PO
     Route: 048
     Dates: start: 20060511, end: 20060515

REACTIONS (4)
  - ANGIONEUROTIC OEDEMA [None]
  - ARTHRALGIA [None]
  - FACE OEDEMA [None]
  - PRURITUS [None]
